FAERS Safety Report 5566269-5 (Version None)
Quarter: 2007Q4

REPORT INFORMATION
  Report Type: 
  Country: None (occurrence: None)
  Receive Date: 20071219
  Receipt Date: 20071206
  Transmission Date: 20080405
  Serious: Yes (Hospitalization)
  Sender: FDA-Public Use
  Company Number: US-BAYER-200714550BWH

PATIENT
  Age: 68 Year
  Sex: Male
  Weight: 65 kg

DRUGS (13)
  1. SORAFENIB (STUDY MED NOT GIVEN) [Suspect]
     Indication: OESOPHAGEAL CARCINOMA
  2. DOCETAXEL (STUDY MED NOT GIVEN) [Suspect]
     Indication: OESOPHAGEAL CARCINOMA
  3. SORAFENIB [Suspect]
     Indication: OESOPHAGEAL CARCINOMA
     Dosage: TOTAL DAILY DOSE: 400 MG  UNIT DOSE: 200 MG
     Route: 048
     Dates: start: 20071129
  4. DOCETAXEL [Suspect]
     Indication: OESOPHAGEAL CARCINOMA
     Route: 042
     Dates: start: 20071128
  5. NEURONTIN [Concomitant]
     Indication: PAIN IN EXTREMITY
     Route: 048
     Dates: start: 20071101
  6. NEURONTIN [Concomitant]
     Route: 048
     Dates: start: 20060101, end: 20071101
  7. PRILOSEC [Concomitant]
     Indication: HIATUS HERNIA
     Route: 048
     Dates: start: 20070201
  8. SENNA S [Concomitant]
     Indication: PROPHYLAXIS AGAINST DIARRHOEA
     Route: 048
     Dates: start: 20070401
  9. ZOMETA [Concomitant]
     Indication: BONE DISORDER
     Route: 042
     Dates: start: 20070518
  10. COMPAZINE [Concomitant]
     Indication: PROPHYLAXIS OF NAUSEA AND VOMITING
     Route: 048
     Dates: start: 20070401
  11. ATIVAN [Concomitant]
     Indication: ANXIETY
     Route: 048
     Dates: start: 20070401
  12. DECADRON [Concomitant]
     Indication: PROPHYLACTIC CHEMOTHERAPY
     Dates: start: 20071127, end: 20071129
  13. STOOL SOFTENER [Concomitant]
     Indication: CONSTIPATION PROPHYLAXIS
     Route: 048
     Dates: start: 20070401

REACTIONS (3)
  - DEHYDRATION [None]
  - FATIGUE [None]
  - MUCOSAL INFLAMMATION [None]
